APPROVED DRUG PRODUCT: PHOSPHOTOPE
Active Ingredient: SODIUM PHOSPHATE P-32
Strength: 1-8mCi/VIAL
Dosage Form/Route: SOLUTION;INJECTION, ORAL
Application: N010927 | Product #001
Applicant: BRACCO DIAGNOSTICS INC
Approved: Approved Prior to Jan 1, 1982 | RLD: No | RS: No | Type: DISCN